FAERS Safety Report 5899689-X (Version None)
Quarter: 2008Q3

REPORT INFORMATION
  Report Type: 
  Country: None (occurrence: None)
  Receive Date: 20080926
  Receipt Date: 20080912
  Transmission Date: 20090109
  Serious: Yes (Other)
  Sender: FDA-Public Use
  Company Number: US-ELI_LILLY_AND_COMPANY-US200808003649

PATIENT
  Sex: Male

DRUGS (7)
  1. FORTEO [Suspect]
     Indication: OSTEOPOROSIS
     Dates: start: 20070601
  2. VITAMIN D [Concomitant]
     Indication: OSTEOPOROSIS
     Dosage: 2000 IU, UNK
     Dates: start: 20070701
  3. CALCIUM GLUCONATE [Concomitant]
     Indication: OSTEOPOROSIS
     Dosage: 1000 MG, UNK
     Dates: start: 20070701
  4. CRESTOR [Concomitant]
     Indication: BLOOD CHOLESTEROL
     Dosage: 5 MG, UNK
     Dates: start: 19950101
  5. PREDNISONE [Concomitant]
     Dosage: 5 MG, UNK
     Dates: start: 19900101
  6. MULTI-VITAMIN [Concomitant]
  7. STATIN /00084401/ [Concomitant]
     Indication: BLOOD CHOLESTEROL
     Dates: start: 19950101

REACTIONS (4)
  - DIZZINESS POSTURAL [None]
  - FALL [None]
  - HYPERVENTILATION [None]
  - LOSS OF CONSCIOUSNESS [None]
